FAERS Safety Report 7480308-6 (Version None)
Quarter: 2011Q2

REPORT INFORMATION
  Report Type: 
  Country: None (occurrence: None)
  Receive Date: 20110504
  Receipt Date: 20110418
  Transmission Date: 20111010
  Serious: Yes (Death)
  Sender: FDA-Public Use
  Company Number: 031429

PATIENT
  Sex: Male
  Weight: 78.7 kg

DRUGS (6)
  1. FOLIC ACID [Concomitant]
  2. CELEBREX [Concomitant]
  3. METHOTREXATE [Concomitant]
  4. ASPIRIN [Concomitant]
  5. CETAPHIL /01414401 [Concomitant]
  6. CIMZIA [Suspect]
     Indication: PSORIATIC ARTHROPATHY
     Dosage: (SUBCUTANEOUS)
     Route: 058
     Dates: end: 20110410

REACTIONS (1)
  - CARDIAC ARREST [None]
